FAERS Safety Report 8231860-4 (Version None)
Quarter: 2012Q1

REPORT INFORMATION
  Report Type: 
  Country: None (occurrence: None)
  Receive Date: 20120323
  Receipt Date: 20120314
  Transmission Date: 20120608
  Serious: Yes (Other)
  Sender: FDA-Public Use
  Company Number: US-ROCHE-1049028

PATIENT
  Sex: Female

DRUGS (9)
  1. EFFEXOR [Concomitant]
  2. PHENERGAN [Concomitant]
     Indication: VOMITING
  3. RIBAVIRIN [Suspect]
     Indication: HEPATITIS C
     Route: 048
     Dates: start: 20110825
  4. SUBOXONE [Concomitant]
     Indication: DRUG ABUSE
  5. PROTONIX [Concomitant]
  6. PHENERGAN [Concomitant]
     Indication: NAUSEA
  7. PEGASYS [Suspect]
     Indication: HEPATITIS C
     Dates: start: 20110825
  8. LACTULOSE [Concomitant]
     Indication: CONSTIPATION
  9. XOPENEX [Concomitant]

REACTIONS (4)
  - MALAISE [None]
  - WEIGHT DECREASED [None]
  - VOMITING [None]
  - PREGNANCY [None]
